FAERS Safety Report 6423683-3 (Version None)
Quarter: 2009Q4

REPORT INFORMATION
  Report Type: 
  Country: None (occurrence: None)
  Receive Date: 20091102
  Receipt Date: 20091020
  Transmission Date: 20100525
  Serious: Yes (Other)
  Sender: FDA-Public Use
  Company Number: US-PFIZER INC-2009287306

PATIENT
  Sex: Male
  Weight: 36.287 kg

DRUGS (2)
  1. CHANTIX [Suspect]
     Indication: SMOKING CESSATION THERAPY
     Dates: start: 20090901
  2. XANAX [Concomitant]
     Dosage: FREQUENCY: AS NEEDED,
     Route: 048

REACTIONS (1)
  - HAEMORRHAGIC DIATHESIS [None]
